FAERS Safety Report 24318566 (Version 1)
Quarter: 2024Q3

REPORT INFORMATION
  Report Type: Spontaneous
  Country: RO (occurrence: RO)
  Receive Date: 20240913
  Receipt Date: 20240913
  Transmission Date: 20241017
  Serious: Yes (Hospitalization, Other)
  Sender: DR REDDYS
  Company Number: None

PATIENT
  Age: 73 Year
  Sex: Female

DRUGS (7)
  1. AZACITIDINE [Suspect]
     Active Substance: AZACITIDINE
     Indication: Acute myeloid leukaemia
  2. VENETOCLAX [Suspect]
     Active Substance: VENETOCLAX
     Indication: Acute myeloid leukaemia
  3. HYDROXYUREA [Suspect]
     Active Substance: HYDROXYUREA
     Indication: Acute monocytic leukaemia
  4. ETOPOSIDE [Suspect]
     Active Substance: ETOPOSIDE
     Indication: Acute monocytic leukaemia
  5. METHOTREXATE [Concomitant]
     Active Substance: METHOTREXATE
     Indication: Product used for unknown indication
     Route: 029
  6. CYTARABINE [Concomitant]
     Active Substance: CYTARABINE
     Indication: Product used for unknown indication
  7. IDARUBICIN [Concomitant]
     Active Substance: IDARUBICIN
     Indication: Acute monocytic leukaemia

REACTIONS (9)
  - Hemiparesis [Not Recovered/Not Resolved]
  - Meningitis [Not Recovered/Not Resolved]
  - Condition aggravated [Unknown]
  - Respiratory tract infection [Unknown]
  - Acute respiratory failure [Unknown]
  - Pyrexia [Unknown]
  - Cerebral atrophy [Unknown]
  - Leukaemia cutis [Unknown]
  - Off label use [Unknown]

NARRATIVE: CASE EVENT DATE: 20240201
